FAERS Safety Report 9921364 (Version 1)
Quarter: 2014Q1

REPORT INFORMATION
  Report Type: Report from Study
  Country: CA (occurrence: CA)
  Receive Date: 20140225
  Receipt Date: 20140225
  Transmission Date: 20141002
  Serious: Yes (Life-Threatening)
  Sender: FDA-Public Use
  Company Number: CA-JNJFOC-20140213535

PATIENT
  Age: 64 Year
  Sex: Male
  Weight: 106.3 kg

DRUGS (1)
  1. REMICADE [Suspect]
     Indication: CROHN^S DISEASE
     Dosage: EVERY 6 TO 8 WEEKS (56 INFUSIONS UNTIL NOW)
     Route: 042
     Dates: start: 20070214, end: 20140220

REACTIONS (1)
  - Lung disorder [Unknown]
